FAERS Safety Report 18601816 (Version 2)
Quarter: 2021Q1

REPORT INFORMATION
  Report Type: Spontaneous
  Country: US (occurrence: US)
  Receive Date: 20201210
  Receipt Date: 20210104
  Transmission Date: 20210419
  Serious: Yes (Other)
  Sender: FDA-Public Use
  Company Number: US-MYLANLABS-2020M1099288

PATIENT
  Age: 72 Year
  Sex: Male

DRUGS (7)
  1. CARBIDOPA/LEVODOPA [Suspect]
     Active Substance: CARBIDOPA\LEVODOPA
     Dosage: 25/250 MG, EVERY 3 HOURS
  2. LEVODOPA [Suspect]
     Active Substance: LEVODOPA
     Indication: PARKINSON^S DISEASE
     Dosage: 82 MILLIGRAM, PRN
     Dates: start: 20201005
  3. LEVODOPA [Suspect]
     Active Substance: LEVODOPA
     Indication: ON AND OFF PHENOMENON
  4. CARBIDOPA/LEVODOPA [Suspect]
     Active Substance: CARBIDOPA\LEVODOPA
     Dosage: 25/100 MG, 1 PILL AT 6 AM, 12.30 PM AND 4.30 PM, 25/100 MG 1 PILL AT 2 PM, 6 PM AND 10 PM
  5. CARBIDOPA/LEVODOPA [Suspect]
     Active Substance: CARBIDOPA\LEVODOPA
     Indication: PARKINSON^S DISEASE
     Dosage: UNK UNK, Q3H, 25/200 MG, EVERY 3 HOURS
  6. CARBIDOPA/LEVODOPA [Suspect]
     Active Substance: CARBIDOPA\LEVODOPA
     Dosage: 50/200 MG, 1 PILL AT BEDTIME AND PRN IN THE MIDDLE OF THE NIGHT
  7. RASAGILINE                         /01759902/ [Concomitant]
     Dosage: 1 MILLIGRAM 1 PILL IN AM (1X/DAY)

REACTIONS (9)
  - Condition aggravated [Unknown]
  - On and off phenomenon [Recovering/Resolving]
  - Drug ineffective [Unknown]
  - Device difficult to use [Unknown]
  - Drug level increased [Unknown]
  - Chest discomfort [Unknown]
  - Saliva discolouration [Unknown]
  - Therapeutic product effect variable [Unknown]
  - Chest pain [Unknown]

NARRATIVE: CASE EVENT DATE: 20201005
